FAERS Safety Report 7937729-4 (Version None)
Quarter: 2011Q4

REPORT INFORMATION
  Report Type: 
  Country: None (occurrence: None)
  Receive Date: 20111123
  Receipt Date: 20111117
  Transmission Date: 20120403
  Serious: Yes (Other)
  Sender: FDA-Public Use
  Company Number: PHHY2011AU88044

PATIENT
  Sex: Female

DRUGS (4)
  1. LEVOTHYROXINE SODIUM [Concomitant]
     Indication: HYPOTHYROIDISM
     Dosage: 100MCG/50MCG ON ALTERNATE DAYS , UNK
  2. DOTHEP [Concomitant]
     Indication: SLEEP DISORDER
     Dosage: 25 MG, UNK
  3. PANAMAX [Concomitant]
     Indication: PAIN
     Dosage: UNK UKN, PRN
     Route: 048
  4. ZOLEDRONOC ACID [Suspect]
     Indication: OSTEOPOROSIS
     Dosage: 5 MG
     Route: 042
     Dates: start: 20101020

REACTIONS (2)
  - PAIN IN EXTREMITY [None]
  - TRIGGER FINGER [None]
